FAERS Safety Report 8459884-2 (Version None)
Quarter: 2012Q2

REPORT INFORMATION
  Report Type: 
  Country: None (occurrence: None)
  Receive Date: 20120622
  Receipt Date: 20120615
  Transmission Date: 20120825
  Serious: Yes (Hospitalization)
  Sender: FDA-Public Use
  Company Number: PHFR2012GB003424

PATIENT
  Sex: Male

DRUGS (3)
  1. CLOZARIL [Suspect]
     Indication: SCHIZOPHRENIA
     Route: 048
     Dates: start: 20110610, end: 20120611
  2. AZATHIOPRINE [Concomitant]
     Indication: LIVER TRANSPLANT
  3. CYCLOSPORINE [Concomitant]
     Indication: LIVER TRANSPLANT

REACTIONS (1)
  - ALCOHOL ABUSE [None]
